FAERS Safety Report 11026598 (Version 1)
Quarter: 2015Q2

REPORT INFORMATION
  Report Type: Spontaneous
  Country: US (occurrence: US)
  Receive Date: 20150414
  Receipt Date: 20150414
  Transmission Date: 20150821
  Serious: No
  Sender: FDA-Public Use
  Company Number: US-GALDERMA-US15001278

PATIENT

DRUGS (2)
  1. SOOLANTRA [Suspect]
     Active Substance: IVERMECTIN
     Route: 061
  2. CLINDAMYCIN TOPICAL [Concomitant]
     Route: 061

REACTIONS (1)
  - Dermatitis contact [Recovering/Resolving]
